FAERS Safety Report 9507464 (Version 1)
Quarter: 2013Q3

REPORT INFORMATION
  Report Type: Spontaneous
  Country: US (occurrence: None)
  Receive Date: 20130906
  Receipt Date: 20130906
  Transmission Date: 20140515
  Serious: Yes (Other)
  Sender: FDA-Public Use
  Company Number: None

PATIENT
  Age: 23 Year
  Sex: Female
  Weight: 56.7 kg

DRUGS (1)
  1. MICROGESTIN [Suspect]
     Indication: CONTRACEPTION
     Dosage: 1 TABLET  ONCE DAILY  TAKEN BY MOUTH
     Route: 048
     Dates: start: 20110601, end: 20130601

REACTIONS (1)
  - Depression [None]
